FAERS Safety Report 5179249-9 (Version None)
Quarter: 2006Q4

REPORT INFORMATION
  Report Type: 
  Country: None (occurrence: None)
  Receive Date: 20061219
  Receipt Date: 20060131
  Transmission Date: 20070319
  Serious: Yes (Other)
  Sender: FDA-Public Use
  Company Number: US-AVENTIS-200611421US

PATIENT
  Age: 79 Year
  Sex: Female

DRUGS (14)
  1. LANTUS [Suspect]
     Indication: DIABETES MELLITUS NON-INSULIN-DEPENDENT
     Dates: start: 20030101
  2. LANTUS [Suspect]
     Dates: start: 20030101
  3. OPTICLIK (INSULIN INJECTION PEN) [Suspect]
     Dates: start: 20040101
  4. ACTOS [Concomitant]
     Dosage: DOSE: UNK
  5. HYDROCODONE BITARTRATE [Concomitant]
     Dosage: DOSE: UNK
  6. NOVOLOG [Concomitant]
     Dosage: DOSE: UNK
  7. LISINOPRIL [Concomitant]
     Dosage: DOSE: UNK
  8. PREMARIN [Concomitant]
     Dosage: DOSE: UNK
  9. AMITRIPTYLINE HCL [Concomitant]
     Dosage: DOSE: UNK
  10. GABAPENTIN [Concomitant]
     Dosage: DOSE: UNK
  11. QUININE SULFATE [Concomitant]
     Dosage: DOSE: UNK
  12. ZANTAC [Concomitant]
     Dosage: DOSE: UNK
  13. SOMA [Concomitant]
     Dosage: DOSE: UNK
  14. NASACORT [Concomitant]
     Dosage: DOSE: UNK

REACTIONS (8)
  - BLOOD GLUCOSE DECREASED [None]
  - BLOOD GLUCOSE INCREASED [None]
  - DEVICE FAILURE [None]
  - DRY EYE [None]
  - EYE INFECTION [None]
  - HYPOTENSION [None]
  - LOSS OF CONSCIOUSNESS [None]
  - PHARMACEUTICAL PRODUCT COMPLAINT [None]
